FAERS Safety Report 24963259 (Version 1)
Quarter: 2025Q1

REPORT INFORMATION
  Report Type: Spontaneous
  Country: US (occurrence: US)
  Receive Date: 20250213
  Receipt Date: 20250213
  Transmission Date: 20250408
  Serious: No
  Sender: ROCHE
  Company Number: US-ROCHE-10000203973

PATIENT
  Age: 52 Year
  Sex: Female
  Weight: 77.11 kg

DRUGS (1)
  1. ACTEMRA [Suspect]
     Active Substance: TOCILIZUMAB
     Indication: Rheumatoid arthritis
     Dosage: MOST RECENT DOSE ON 31-JAN-2025, ONGOING
     Route: 058
     Dates: start: 2022

REACTIONS (2)
  - Intentional product misuse [Unknown]
  - No adverse event [Unknown]

NARRATIVE: CASE EVENT DATE: 20250101
